FAERS Safety Report 4569803-7 (Version None)
Quarter: 2005Q1

REPORT INFORMATION
  Report Type: 
  Country: None (occurrence: None)
  Receive Date: 20050203
  Receipt Date: 20041105
  Transmission Date: 20050727
  Serious: Yes (Life-Threatening, Hospitalization)
  Sender: FDA-Public Use
  Company Number: US-MERCK-0411USA00984

PATIENT
  Sex: Female

DRUGS (14)
  1. VIOXX [Suspect]
     Indication: ARTHRITIS
     Route: 048
     Dates: start: 20010416
  2. VIOXX [Suspect]
     Indication: SYNOVITIS
     Route: 048
     Dates: start: 20010416
  3. HYDROCHLOROTHIAZIDE [Concomitant]
     Route: 065
  4. LIPITOR [Concomitant]
     Route: 065
  5. METOPROLOL [Concomitant]
     Route: 065
  6. PREVACID [Concomitant]
     Route: 065
  7. ISOSORBIDE [Concomitant]
     Route: 065
  8. FLOVENT [Concomitant]
     Route: 065
  9. SEREVENT [Concomitant]
     Route: 065
  10. ALBUTEROL [Concomitant]
     Route: 065
  11. ASPIRIN [Concomitant]
     Route: 065
  12. CENTRUM [Concomitant]
     Route: 065
  13. TYLENOL [Concomitant]
     Route: 065
  14. METOCLOPRAMIDE HYDROCHLORIDE [Concomitant]
     Route: 065

REACTIONS (1)
  - MYOCARDIAL INFARCTION [None]
